FAERS Safety Report 15699100 (Version 1)
Quarter: 2018Q4

REPORT INFORMATION
  Report Type: Spontaneous
  Country: DK (occurrence: DK)
  Receive Date: 20181207
  Receipt Date: 20181207
  Transmission Date: 20190205
  Serious: Yes (Other)
  Sender: FDA-Public Use
  Company Number: DK-TEVA-2018-DK-983024

PATIENT
  Age: 52 Year
  Sex: Female

DRUGS (3)
  1. SENDOXAN [Concomitant]
     Active Substance: CYCLOPHOSPHAMIDE
     Indication: CENTRAL NERVOUS SYSTEM VASCULITIS
     Dosage: DOSAGE: 21JUN2017, 19JUL2017, 17AUG2017: 1485 MG. OTHER TREATMENT DAYS AND DOSES: UNKNOWN.
     Route: 042
     Dates: start: 201511
  2. IMUREL [Concomitant]
     Active Substance: AZATHIOPRINE SODIUM
     Indication: CENTRAL NERVOUS SYSTEM VASCULITIS
     Route: 048
     Dates: start: 201509
  3. PREDNISOLONE. [Suspect]
     Active Substance: PREDNISOLONE
     Indication: CENTRAL NERVOUS SYSTEM VASCULITIS
     Dosage: DOSAGE: VARYING. STARTING DOSE 150 MG. DOSE DECREASED DUE TO ADVERSE REACTIONS. INCREASED DUE TO
     Route: 048
     Dates: start: 20150518

REACTIONS (2)
  - Suicidal ideation [Unknown]
  - Fear of death [Unknown]

NARRATIVE: CASE EVENT DATE: 201506
